FAERS Safety Report 9085420 (Version 1)
Quarter: 2013Q1

REPORT INFORMATION
  Report Type: Report from Study
  Country: US (occurrence: US)
  Receive Date: 20130131
  Receipt Date: 20130131
  Transmission Date: 20140127
  Serious: No
  Sender: FDA-Public Use
  Company Number: US-ABBOTT-12P-163-0989188-00

PATIENT
  Sex: Female

DRUGS (1)
  1. HUMIRA [Suspect]
     Indication: PSORIATIC ARTHROPATHY
     Route: 058
     Dates: start: 201206

REACTIONS (6)
  - Neoplasm skin [Unknown]
  - Contusion [Recovering/Resolving]
  - Pruritus [Unknown]
  - Hyperaesthesia [Unknown]
  - Drug ineffective [Unknown]
  - Psoriasis [Unknown]
